FAERS Safety Report 13378315 (Version 1)
Quarter: 2017Q1

REPORT INFORMATION
  Report Type: Spontaneous
  Country: AT (occurrence: AT)
  Receive Date: 20170328
  Receipt Date: 20170328
  Transmission Date: 20170429
  Serious: Yes (Hospitalization)
  Sender: FDA-Public Use
  Company Number: AT-TEVA-753223ROM

PATIENT
  Age: 61 Year
  Sex: Female

DRUGS (3)
  1. PICOLAX (MAGNESIUM CITRATE\SODIUM PICOSULFATE) [Concomitant]
     Active Substance: MAGNESIUM CITRATE\SODIUM PICOSULFATE
     Indication: BOWEL PREPARATION
     Route: 065
  2. DICLOFENAC [Suspect]
     Active Substance: DICLOFENAC
     Indication: MUSCULOSKELETAL PAIN
     Dosage: 100 MILLIGRAM DAILY;
     Route: 065
  3. LEVOTHYROXINE SODIUM. [Concomitant]
     Active Substance: LEVOTHYROXINE SODIUM
     Indication: HYPOTHYROIDISM
     Route: 065

REACTIONS (2)
  - Water intoxication [Recovered/Resolved]
  - Hyponatraemic encephalopathy [Recovered/Resolved]
